FAERS Safety Report 19814589 (Version 2)
Quarter: 2021Q4

REPORT INFORMATION
  Report Type: Report from Study
  Country: US (occurrence: US)
  Receive Date: 20210909
  Receipt Date: 20211007
  Transmission Date: 20220303
  Serious: Yes (Hospitalization)
  Sender: FDA-Public Use
  Company Number: US-EISAI MEDICAL RESEARCH-EC-2021-099171

PATIENT
  Age: 70 Year
  Sex: Female

DRUGS (3)
  1. LENVIMA [Suspect]
     Active Substance: LENVATINIB
     Indication: Endometrial cancer
     Route: 048
     Dates: start: 20210730, end: 20210818
  2. LENVIMA [Suspect]
     Active Substance: LENVATINIB
     Route: 048
     Dates: start: 20210819, end: 20210916
  3. KEYTRUDA [Concomitant]
     Active Substance: PEMBROLIZUMAB

REACTIONS (4)
  - Cardiac disorder [Recovering/Resolving]
  - Pulmonary embolism [Recovering/Resolving]
  - Gait disturbance [Recovering/Resolving]
  - Insomnia [Recovering/Resolving]

NARRATIVE: CASE EVENT DATE: 20210830
